FAERS Safety Report 8448000-9 (Version None)
Quarter: 2012Q2

REPORT INFORMATION
  Report Type: 
  Country: None (occurrence: None)
  Receive Date: 20120619
  Receipt Date: 20120612
  Transmission Date: 20120825
  Serious: Yes (Other)
  Sender: FDA-Public Use
  Company Number: US-PFIZER INC-2012109062

PATIENT
  Sex: Female

DRUGS (2)
  1. LIPITOR [Suspect]
     Dosage: UNK
  2. NEURONTIN [Concomitant]

REACTIONS (5)
  - CHEST PAIN [None]
  - SWELLING [None]
  - DECREASED APPETITE [None]
  - SOMNOLENCE [None]
  - VOMITING [None]
